FAERS Safety Report 13930396 (Version 2)
Quarter: 2017Q3

REPORT INFORMATION
  Report Type: Spontaneous
  Country: US (occurrence: US)
  Receive Date: 20170901
  Receipt Date: 20170905
  Transmission Date: 20171127
  Serious: Yes (Death, Hospitalization)
  Sender: FDA-Public Use
  Company Number: US-B.I. PHARMACEUTICALS,INC./RIDGEFIELD-2017-BI-048405

PATIENT
  Age: 72 Year
  Sex: Male

DRUGS (3)
  1. CILOSTAZOL. [Interacting]
     Active Substance: CILOSTAZOL
     Indication: PRODUCT USED FOR UNKNOWN INDICATION
     Route: 065
  2. METFORMIN [Concomitant]
     Active Substance: METFORMIN HYDROCHLORIDE
     Indication: PRODUCT USED FOR UNKNOWN INDICATION
     Route: 065
  3. FLOMAX [Suspect]
     Active Substance: TAMSULOSIN HYDROCHLORIDE
     Indication: PRODUCT USED FOR UNKNOWN INDICATION
     Route: 065

REACTIONS (10)
  - Neck pain [Unknown]
  - Mental impairment [Unknown]
  - Vomiting [Unknown]
  - Headache [Unknown]
  - Intentional overdose [Fatal]
  - Agitation [Unknown]
  - Diarrhoea [Unknown]
  - Hypotension [Fatal]
  - Drug interaction [Unknown]
  - Blood glucose increased [Unknown]
